FAERS Safety Report 4720225-5 (Version None)
Quarter: 2005Q3

REPORT INFORMATION
  Report Type: 
  Country: None (occurrence: None)
  Receive Date: 20050721
  Receipt Date: 20050627
  Transmission Date: 20060218
  Serious: Yes (Hospitalization)
  Sender: FDA-Public Use
  Company Number: 200511893JP

PATIENT
  Age: 27 Year
  Sex: 0

DRUGS (2)
  1. LASIX [Suspect]
     Route: 048
  2. CHINESE MEDICINE [Concomitant]

REACTIONS (1)
  - BARTTER'S SYNDROME [None]
